FAERS Safety Report 5869851-0 (Version None)
Quarter: 2008Q3

REPORT INFORMATION
  Report Type: 
  Country: None (occurrence: None)
  Receive Date: 20080904
  Receipt Date: 20080822
  Transmission Date: 20090109
  Serious: Yes (Other)
  Sender: FDA-Public Use
  Company Number: US-PFIZER INC-2008018842

PATIENT
  Sex: Female
  Weight: 102 kg

DRUGS (6)
  1. NEURONTIN [Suspect]
     Indication: NEURALGIA
  2. NEURONTIN [Suspect]
     Indication: FIBROMYALGIA
  3. THYROID TAB [Concomitant]
  4. VICODIN [Concomitant]
  5. GLUCOPHAGE [Concomitant]
  6. ANTI-DIABETICS [Concomitant]

REACTIONS (4)
  - ANGIOEDEMA [None]
  - HYPERSENSITIVITY [None]
  - OEDEMA PERIPHERAL [None]
  - THROAT TIGHTNESS [None]
